FAERS Safety Report 9225803 (Version 1)
Quarter: 2013Q1

REPORT INFORMATION
  Report Type: Spontaneous
  Country: US (occurrence: None)
  Receive Date: 20120914
  Receipt Date: 20120914
  Transmission Date: 20140127
  Serious: No
  Sender: FDA-Public Use
  Company Number: JPI-P-017265

PATIENT
  Age: 24 Year
  Sex: Female
  Weight: 59.88 kg

DRUGS (3)
  1. XYREM (500 MILLIGRAM/MILLILITERS SOLUTION) (SODIUM OXYBATE) [Suspect]
     Indication: NARCOLEPSY
     Route: 048
     Dates: start: 20101130
  2. PRENATAL VITAMINS [Concomitant]
  3. ARMODAFINIL [Concomitant]

REACTIONS (2)
  - Weight decreased [None]
  - Somnolence [None]
